FAERS Safety Report 13285958 (Version 1)
Quarter: 2017Q1

REPORT INFORMATION
  Report Type: Spontaneous
  Country: US (occurrence: US)
  Receive Date: 20170302
  Receipt Date: 20170302
  Transmission Date: 20170428
  Serious: No
  Sender: FDA-Public Use
  Company Number: US-ALLERGAN-1000087428

PATIENT
  Age: 39 Year
  Sex: Female

DRUGS (3)
  1. NORCO 2.5/325 [Concomitant]
     Indication: ARTHRALGIA
     Dosage: PRN
     Route: 048
  2. VYVANSE [Concomitant]
     Active Substance: LISDEXAMFETAMINE DIMESYLATE
     Indication: ATTENTION DEFICIT/HYPERACTIVITY DISORDER
     Dosage: UNKNOWN
     Route: 048
  3. VIIBRYD [Suspect]
     Active Substance: VILAZODONE HYDROCHLORIDE
     Indication: DEPRESSION
     Dosage: 20 MG, QD
     Route: 048
     Dates: start: 20160803, end: 20160903

REACTIONS (2)
  - Acne [Recovered/Resolved]
  - Dilated pores [Recovered/Resolved]

NARRATIVE: CASE EVENT DATE: 20160811
